FAERS Safety Report 4293694-5 (Version None)
Quarter: 2004Q1

REPORT INFORMATION
  Report Type: 
  Country: None (occurrence: None)
  Receive Date: 20040212
  Receipt Date: 20020514
  Transmission Date: 20041129
  Serious: Yes (Death, Life-Threatening)
  Sender: FDA-Public Use
  Company Number: GB-ROCHE-313405

PATIENT
  Age: 57 Year
  Sex: Female
  Weight: 54 kg

DRUGS (9)
  1. DACLIZUMAB [Suspect]
     Route: 042
     Dates: start: 20020503, end: 20020503
  2. DACLIZUMAB [Suspect]
     Route: 042
  3. MYCOPHENOLATE MOFETIL [Suspect]
     Route: 048
     Dates: start: 20020503, end: 20020513
  4. CYCLOSPORINE [Concomitant]
     Dates: start: 20020503, end: 20020512
  5. PREDNISOLONE [Concomitant]
     Dates: start: 20020503, end: 20020512
  6. HEPARIN [Concomitant]
     Dates: start: 20020505, end: 20020512
  7. AMPHOTERICIN B [Concomitant]
     Dates: start: 20020504, end: 20020512
  8. NASEPTIN [Concomitant]
     Dosage: TOPICAL.
     Dates: start: 20020504, end: 20020512
  9. PAROXETINE [Concomitant]
     Dates: start: 20020507, end: 20020512

REACTIONS (7)
  - BACTERIAL INFECTION [None]
  - BLOOD CULTURE POSITIVE [None]
  - CARDIAC AMYLOIDOSIS [None]
  - CARDIAC ARREST [None]
  - CARDIOGENIC SHOCK [None]
  - ESCHERICHIA INFECTION [None]
  - SEPSIS [None]
